FAERS Safety Report 26185738 (Version 1)
Quarter: 2025Q4

REPORT INFORMATION
  Report Type: Spontaneous
  Country: US (occurrence: None)
  Receive Date: 20251219
  Receipt Date: 20251219
  Transmission Date: 20260119
  Serious: Yes (Other)
  Sender: FDA-CTU
  Company Number: None

PATIENT
  Age: 6 Year
  Sex: Male
  Weight: 26.55 kg

DRUGS (3)
  1. OSELTAMIVIR PHOSPHATE [Suspect]
     Active Substance: OSELTAMIVIR PHOSPHATE
     Indication: Influenza
     Dosage: OTHER QUANTITY : 10 MLS;?FREQUENCY : TWICE A DAY;
     Route: 048
     Dates: start: 20251217, end: 20251218
  2. Calcium/vitamin D supplement [Concomitant]
  3. Multivitamin gummies [Concomitant]

REACTIONS (8)
  - Nightmare [None]
  - Feeling abnormal [None]
  - Delirium [None]
  - Fear [None]
  - Muscle twitching [None]
  - Tremor [None]
  - Headache [None]
  - Therapy cessation [None]

NARRATIVE: CASE EVENT DATE: 20251219
